FAERS Safety Report 22059550 (Version 1)
Quarter: 2023Q1

REPORT INFORMATION
  Report Type: Spontaneous
  Country: US (occurrence: US)
  Receive Date: 20230303
  Receipt Date: 20230303
  Transmission Date: 20230417
  Serious: No
  Sender: FDA-Public Use
  Company Number: US-JNJFOC-20230253132

PATIENT
  Age: 47 Year
  Sex: Male

DRUGS (3)
  1. OPSUMIT [Suspect]
     Active Substance: MACITENTAN
     Indication: Product used for unknown indication
     Route: 048
  2. TYVASO [Suspect]
     Active Substance: TREPROSTINIL
     Indication: Pulmonary hypertension
     Dosage: TYVASO INHALATION DEVICE (TD-300/A), (3 BREATHS), FOUR TIMES A DAY (QID) VIA INHALATION (IH) ROUTE
     Route: 065
     Dates: start: 202302
  3. ADEMPAS [Suspect]
     Active Substance: RIOCIGUAT
     Route: 065

REACTIONS (3)
  - Dizziness postural [Unknown]
  - Oedema [Recovered/Resolved]
  - Cough [Unknown]

NARRATIVE: CASE EVENT DATE: 20230201
